FAERS Safety Report 5534014-5 (Version None)
Quarter: 2007Q4

REPORT INFORMATION
  Report Type: 
  Country: None (occurrence: None)
  Receive Date: 20071130
  Receipt Date: 20071116
  Transmission Date: 20080405
  Serious: Yes (Death)
  Sender: FDA-Public Use
  Company Number: 2007S1009833

PATIENT
  Age: 49 Year
  Sex: Male
  Weight: 73.4827 kg

DRUGS (8)
  1. CLOZAPINE [Suspect]
     Indication: SCHIZOPHRENIA
     Dosage: 150 MG; EVERY MORNING; ORAL, 300 MG; AT BEDTIME; ORAL
     Route: 048
     Dates: end: 20071005
  2. CLOZAPINE [Suspect]
     Indication: SCHIZOPHRENIA
     Dosage: 150 MG; EVERY MORNING; ORAL, 300 MG; AT BEDTIME; ORAL
     Route: 048
     Dates: end: 20071005
  3. GLYBURIDE [Suspect]
  4. CELEXA [Concomitant]
  5. TRAZODONE HCL [Concomitant]
  6. LOPERAMIDE HCL [Concomitant]
  7. OMEPRAZOLE [Concomitant]
  8. UROXATRAL [Concomitant]

REACTIONS (3)
  - DRUG INTERACTION INHIBITION [None]
  - DRUG TOXICITY [None]
  - WHITE BLOOD CELL COUNT DECREASED [None]
